FAERS Safety Report 12475184 (Version 3)
Quarter: 2017Q2

REPORT INFORMATION
  Report Type: Spontaneous
  Country: US (occurrence: US)
  Receive Date: 20160617
  Receipt Date: 20170427
  Transmission Date: 20170830
  Serious: No
  Sender: FDA-Public Use
  Company Number: US-PFIZER INC-2016285687

PATIENT
  Age: 65 Year
  Sex: Female
  Weight: 62.6 kg

DRUGS (16)
  1. METHOCARBAMOL. [Concomitant]
     Active Substance: METHOCARBAMOL
     Indication: MUSCLE SPASMS
     Dosage: 1 DF, AS NEEDED EVERY 8 HOURS
  2. ARMOUR THYROID [Concomitant]
     Active Substance: THYROID, PORCINE
     Dosage: 1 TABLET DAILY
     Route: 048
  3. TRAVATAN Z [Concomitant]
     Active Substance: TRAVOPROST
     Dosage: ONE DROP PER EYE AT BEDTIME
  4. VITAMIN D3 [Concomitant]
     Active Substance: CHOLECALCIFEROL
     Dosage: UNK, TAKE ONE TO TWO TABLETS PER DAY
  5. MILK THISTLE [Concomitant]
     Active Substance: MILK THISTLE
     Dosage: UNK, DAILY
  6. PROLIA [Concomitant]
     Active Substance: DENOSUMAB
     Dosage: UNK
     Dates: start: 201505
  7. VITAMIN B COMPLEX [Concomitant]
     Active Substance: CYANOCOBALAMIN\DEXPANTHENOL\NIACINAMIDE\PYRIDOXINE HYDROCHLORIDE\RIBOFLAVIN 5^-PHOSPHATE SODIUM\THIAMINE HYDROCHLORIDE\VITAMIN B COMPLEX
     Dosage: 1 DF, 2X/DAY
  8. L-GLUTAMINE [Concomitant]
     Dosage: UNK, TAKE ONE TO TWO TEASPOON AS NEEDED
  9. ESCITALOPRAM OXALATE. [Concomitant]
     Active Substance: ESCITALOPRAM OXALATE
     Dosage: 1 TABLET DAILY
     Route: 048
  10. L-LYSINE [Concomitant]
     Active Substance: LYSINE
     Dosage: ONE CAPSULE DAILY
  11. ONDANSETRON [Concomitant]
     Active Substance: ONDANSETRON
     Indication: NAUSEA
     Dosage: 1 TABLET EVERY 8 HOURS AS NEEDED FOR NAUSEA
  12. LIDOCAINE HCL [Concomitant]
     Active Substance: LIDOCAINE HYDROCHLORIDE
     Dosage: UNK, APPLY TOPICALLY PRIOR TO INTERCOURSE
     Route: 061
  13. IBRANCE [Suspect]
     Active Substance: PALBOCICLIB
     Indication: BREAST CANCER METASTATIC
     Dosage: 125 MG, CYCLIC (1 CAP DAILY FOR 21 DAYS, REST 7 DAYS, REPEAT)
     Route: 048
     Dates: start: 20160531
  14. FASLODEX [Suspect]
     Active Substance: FULVESTRANT
     Dosage: 500 MG, DAY 1, 15, 29 THEN MONTHLY THEREAFTER
     Route: 030
     Dates: start: 201605
  15. VITAMIN C WITH ROSE HIPS [Concomitant]
     Dosage: 1 DF, 2X/DAY
  16. PANCREATIN [Concomitant]
     Active Substance: PANCRELIPASE
     Dosage: UNK, TAKE ONE TO TWO TABLETS DAILY

REACTIONS (5)
  - Headache [Not Recovered/Not Resolved]
  - Nausea [Not Recovered/Not Resolved]
  - Yawning [Not Recovered/Not Resolved]
  - Feeling hot [Not Recovered/Not Resolved]
  - Hot flush [Unknown]

NARRATIVE: CASE EVENT DATE: 20160601
